FAERS Safety Report 18984107 (Version 1)
Quarter: 2021Q1

REPORT INFORMATION
  Report Type: Spontaneous
  Country: FR (occurrence: FR)
  Receive Date: 20210309
  Receipt Date: 20210309
  Transmission Date: 20210420
  Serious: Yes (Hospitalization, Other)
  Sender: FDA-Public Use
  Company Number: FR-AUROBINDO-AUR-APL-2021-009220

PATIENT
  Age: 69 Year
  Sex: Female
  Weight: 63.3 kg

DRUGS (1)
  1. RALOXIFENE. [Suspect]
     Active Substance: RALOXIFENE
     Indication: OSTEOPOROTIC FRACTURE
     Dosage: 60 MILLIGRAM, ONCE A DAY
     Route: 048
     Dates: start: 20201102, end: 20201120

REACTIONS (2)
  - Hepatocellular injury [Recovered/Resolved]
  - Cholestasis [Recovered/Resolved]

NARRATIVE: CASE EVENT DATE: 20201120
